FAERS Safety Report 7509769-0 (Version None)
Quarter: 2011Q2

REPORT INFORMATION
  Report Type: 
  Country: None (occurrence: None)
  Receive Date: 20110527
  Receipt Date: 20110525
  Transmission Date: 20111010
  Serious: Yes (Death)
  Sender: FDA-Public Use
  Company Number: US-ABBOTT-11P-163-0728322-00

PATIENT
  Sex: Male

DRUGS (2)
  1. UNKNOWN IMMUNOSUPPRESSANT MEDICATION [Concomitant]
     Indication: CROHN'S DISEASE
  2. HUMIRA [Suspect]
     Indication: CROHN'S DISEASE
     Dosage: LOADING DOSE ONLY

REACTIONS (8)
  - LUNG INFECTION [None]
  - EMBOLISM [None]
  - ARRHYTHMIA [None]
  - DYSPNOEA [None]
  - SUDDEN DEATH [None]
  - SEPTIC SHOCK [None]
  - OEDEMA PERIPHERAL [None]
  - PYREXIA [None]
